FAERS Safety Report 5633475-0 (Version None)
Quarter: 2008Q1

REPORT INFORMATION
  Report Type: 
  Country: None (occurrence: None)
  Receive Date: 20080221
  Receipt Date: 20080210
  Transmission Date: 20080703
  Serious: Yes (Hospitalization, Other)
  Sender: FDA-Public Use
  Company Number: US-PFIZER INC-2007013184

PATIENT
  Sex: Female
  Weight: 83 kg

DRUGS (15)
  1. CHANTIX [Suspect]
     Indication: SMOKING CESSATION THERAPY
     Route: 048
     Dates: start: 20070129, end: 20071101
  2. LEVAQUIN [Suspect]
     Indication: BACTERIAL INFECTION
     Dates: start: 20070216, end: 20070222
  3. RISPERDAL [Suspect]
  4. STELAZINE [Suspect]
  5. DEPAKOTE [Concomitant]
  6. TRAZODONE HCL [Concomitant]
  7. RISPERDAL [Concomitant]
  8. ZOLOFT [Concomitant]
  9. BUSPAR [Concomitant]
  10. ALBUTEROL [Concomitant]
     Indication: EMPHYSEMA
  11. VITAMIN E [Concomitant]
  12. ALL OTHER THERAPEUTIC PRODUCTS [Concomitant]
  13. CREON ^DUPHAR^ [Concomitant]
  14. PREDNISONE TAB [Concomitant]
  15. SEROQUEL [Concomitant]

REACTIONS (23)
  - ABNORMAL DREAMS [None]
  - ANXIETY [None]
  - ARTHRALGIA [None]
  - BACTERIA URINE [None]
  - CHEST DISCOMFORT [None]
  - CHOKING [None]
  - DEPRESSION [None]
  - DIARRHOEA [None]
  - DYSPEPSIA [None]
  - FEELING COLD [None]
  - FLATULENCE [None]
  - HALLUCINATION, AUDITORY [None]
  - HEADACHE [None]
  - HYPOAESTHESIA [None]
  - MALAISE [None]
  - MOOD ALTERED [None]
  - NAUSEA [None]
  - SCIATICA [None]
  - SINUS CONGESTION [None]
  - SMOKER [None]
  - VISION BLURRED [None]
  - VISUAL DISTURBANCE [None]
  - WEIGHT INCREASED [None]
